FAERS Safety Report 14148645 (Version 1)
Quarter: 2017Q4

REPORT INFORMATION
  Report Type: Spontaneous
  Country: US (occurrence: US)
  Receive Date: 20171031
  Receipt Date: 20171031
  Transmission Date: 20180321
  Serious: Yes (Life-Threatening, Hospitalization)
  Sender: FDA-Public Use
  Company Number: None

PATIENT
  Age: 77 Year
  Sex: Female
  Weight: 88.1 kg

DRUGS (2)
  1. VITAMIN K [Suspect]
     Active Substance: PHYTONADIONE
     Indication: COAGULOPATHY
     Dosage: ?          OTHER FREQUENCY:ONCE;?
     Route: 041
  2. VITAMIN K [Suspect]
     Active Substance: PHYTONADIONE
     Indication: HAEMORRHAGE
     Dosage: ?          OTHER FREQUENCY:ONCE;?
     Route: 041

REACTIONS (9)
  - Wheezing [None]
  - Pulseless electrical activity [None]
  - Rectal haemorrhage [None]
  - Cardiac arrest [None]
  - Infusion related reaction [None]
  - Haemoglobin decreased [None]
  - Dyspnoea [None]
  - International normalised ratio increased [None]
  - Confusional state [None]

NARRATIVE: CASE EVENT DATE: 20171024
